FAERS Safety Report 17146216 (Version 2)
Quarter: 2019Q4

REPORT INFORMATION
  Report Type: Spontaneous
  Country: ES (occurrence: ES)
  Receive Date: 20191212
  Receipt Date: 20191217
  Transmission Date: 20200122
  Serious: Yes (Other)
  Sender: FDA-Public Use
  Company Number: ES-ABBVIE-19P-144-3193728-00

PATIENT
  Sex: Female

DRUGS (1)
  1. LEUPRORELIN [Suspect]
     Active Substance: LEUPROLIDE ACETATE
     Indication: PITUITARY-DEPENDENT CUSHING^S SYNDROME
     Dosage: 3.75 MILLIGRAM, Q4WEEKS
     Route: 030

REACTIONS (5)
  - Drug ineffective for unapproved indication [Unknown]
  - Incorrect route of product administration [Unknown]
  - Hypertension [Unknown]
  - Myopathy [Unknown]
  - Diabetes mellitus [Unknown]
